FAERS Safety Report 5328541-3 (Version None)
Quarter: 2007Q2

REPORT INFORMATION
  Report Type: 
  Country: None (occurrence: None)
  Receive Date: 20070518
  Receipt Date: 20070515
  Transmission Date: 20071010
  Serious: Yes (Other)
  Sender: FDA-Public Use
  Company Number: GR-BRISTOL-MYERS SQUIBB COMPANY-13782479

PATIENT
  Age: 58 Year
  Sex: Male

DRUGS (1)
  1. IRBESARTAN [Suspect]
     Route: 048
     Dates: start: 20060101

REACTIONS (1)
  - VITAMIN B12 DECREASED [None]
